FAERS Safety Report 4906439-X (Version None)
Quarter: 2006Q1

REPORT INFORMATION
  Report Type: 
  Country: None (occurrence: None)
  Receive Date: 20060209
  Receipt Date: 20060112
  Transmission Date: 20060701
  Serious: Yes (Other)
  Sender: FDA-Public Use
  Company Number: US-BRISTOL-MYERS SQUIBB COMPANY-13249974

PATIENT
  Age: 73 Year
  Sex: Female

DRUGS (6)
  1. ERBITUX [Suspect]
     Indication: COLON CANCER
     Route: 042
     Dates: start: 20060110, end: 20060110
  2. ZOFRAN [Concomitant]
     Indication: PREMEDICATION
     Route: 042
     Dates: start: 20060110, end: 20060110
  3. BENADRYL [Concomitant]
     Indication: PREMEDICATION
     Route: 042
     Dates: start: 20060110, end: 20060110
  4. LEUCOVORIN [Concomitant]
     Dates: start: 20060110, end: 20060110
  5. NORMAL SALINE [Concomitant]
     Route: 042
     Dates: start: 20060110, end: 20060110
  6. FLUOROURACIL [Concomitant]
     Dosage: 588 MG IV BOLUS THEN 22 HR CI OF 882 MG
     Route: 042

REACTIONS (12)
  - ASTHENIA [None]
  - BLADDER DISTENSION [None]
  - DEPRESSED LEVEL OF CONSCIOUSNESS [None]
  - DIFFICULTY IN WALKING [None]
  - FATIGUE [None]
  - HEADACHE [None]
  - HYPERTENSION [None]
  - PARAESTHESIA [None]
  - PERIPHERAL COLDNESS [None]
  - STOMATITIS [None]
  - URINARY INCONTINENCE [None]
  - VOMITING [None]
